FAERS Safety Report 7604148-X (Version None)
Quarter: 2011Q2

REPORT INFORMATION
  Report Type: 
  Country: None (occurrence: None)
  Receive Date: 20110630
  Receipt Date: 20110617
  Transmission Date: 20111010
  Serious: Yes (Life-Threatening, Hospitalization)
  Sender: FDA-Public Use
  Company Number: TCI2011A03596

PATIENT
  Age: 63 Year
  Sex: Male

DRUGS (1)
  1. ACTOS [Suspect]
     Indication: TYPE 2 DIABETES MELLITUS
     Dosage: 15 MG (15 MG, 1 D)
     Route: 048

REACTIONS (2)
  - BLADDER CANCER [None]
  - DRUG INEFFECTIVE [None]
